FAERS Safety Report 5367529-3 (Version None)
Quarter: 2007Q2

REPORT INFORMATION
  Report Type: 
  Country: None (occurrence: None)
  Receive Date: 20070622
  Receipt Date: 20061211
  Transmission Date: 20071010
  Serious: No
  Sender: FDA-Public Use
  Company Number: US-ASTRAZENECA-2006UW27384

PATIENT
  Age: 80 Year
  Sex: Male
  Weight: 65.3 kg

DRUGS (4)
  1. PULMICORT TH [Suspect]
     Indication: PULMONARY FIBROSIS
     Dosage: 1 PUFF TWICE A DAY
     Route: 055
     Dates: start: 20060907
  2. NEXIUM [Concomitant]
  3. MULTIVITAMIN [Concomitant]
  4. ALEVE [Concomitant]

REACTIONS (3)
  - COUGH [None]
  - EPISTAXIS [None]
  - RHINORRHOEA [None]
